FAERS Safety Report 13402065 (Version 8)
Quarter: 2017Q4

REPORT INFORMATION
  Report Type: Spontaneous
  Country: US (occurrence: US)
  Receive Date: 20170404
  Receipt Date: 20171226
  Transmission Date: 20180320
  Serious: Yes (Hospitalization, Other)
  Sender: FDA-Public Use
  Company Number: US-009507513-1704USA000011

PATIENT
  Sex: Female
  Weight: 79.37 kg

DRUGS (2)
  1. NUVARING [Suspect]
     Active Substance: ETHINYL ESTRADIOL\ETONOGESTREL
     Indication: MENSTRUAL CYCLE MANAGEMENT
     Dosage: CONTINUOUSLY FOR 3 RINGS THEN REMOVE TO CYCLE THEN REPEAT
     Route: 067
     Dates: start: 20131113
  2. NUVARING [Suspect]
     Active Substance: ETHINYL ESTRADIOL\ETONOGESTREL
     Indication: CONTRACEPTION
     Dosage: 0.12-0.015MG/24HR, 1 RING FOR 3 WEEKS THEN OUT 1 WEEK OFF
     Route: 067
     Dates: start: 20130904, end: 20140404

REACTIONS (50)
  - Pneumonia [Unknown]
  - Nephrolithiasis [Unknown]
  - Ovarian cyst [Unknown]
  - Back pain [Unknown]
  - Endometriosis [Unknown]
  - Hypersensitivity [Unknown]
  - Coagulopathy [Unknown]
  - Gastroenteritis [Unknown]
  - Abdominal pain [Unknown]
  - Abdominal pain [Unknown]
  - Hirsutism [Unknown]
  - Libido decreased [Unknown]
  - Chest pain [Unknown]
  - Cough [Unknown]
  - Head injury [Unknown]
  - Suicidal ideation [Unknown]
  - Fatigue [Unknown]
  - Haematoma [Unknown]
  - Respiratory tract congestion [Unknown]
  - Bulimia nervosa [Unknown]
  - Urinary tract infection [Unknown]
  - Pulmonary infarction [Unknown]
  - Inappropriate schedule of drug administration [Unknown]
  - Acute sinusitis [Unknown]
  - Dyspareunia [Unknown]
  - Insomnia [Unknown]
  - Dysuria [Unknown]
  - Musculoskeletal chest pain [Unknown]
  - Pulmonary embolism [Recovered/Resolved]
  - Hallucination [Unknown]
  - Nausea [Unknown]
  - Suicidal behaviour [Recovered/Resolved]
  - Pruritus [Unknown]
  - Product use in unapproved indication [Unknown]
  - Joint injury [Unknown]
  - Vascular injury [Unknown]
  - Dyschezia [Unknown]
  - Dysmenorrhoea [Unknown]
  - Menorrhagia [Not Recovered/Not Resolved]
  - Anxiety [Unknown]
  - Acute sinusitis [Unknown]
  - Chest discomfort [Unknown]
  - Major depression [Not Recovered/Not Resolved]
  - Respiratory tract irritation [Unknown]
  - Migraine [Unknown]
  - Haematuria [Unknown]
  - Arthralgia [Unknown]
  - Polycystic ovaries [Unknown]
  - Dyspnoea [Unknown]
  - Head injury [Unknown]

NARRATIVE: CASE EVENT DATE: 20131101
